FAERS Safety Report 22656602 (Version 1)
Quarter: 2023Q2

REPORT INFORMATION
  Report Type: Report from Study
  Country: GB (occurrence: GB)
  Receive Date: 20230630
  Receipt Date: 20230630
  Transmission Date: 20230721
  Serious: Yes (Hospitalization)
  Sender: FDA-Public Use
  Company Number: GB-ABBVIE-5279032

PATIENT
  Sex: Male

DRUGS (2)
  1. SKYRIZI [Suspect]
     Active Substance: RISANKIZUMAB-RZAA
     Indication: Psoriasis
     Dosage: FORM STRENGTH: 150 MILLIGRAM
     Route: 058
     Dates: end: 2023
  2. TEICOPLANIN [Concomitant]
     Active Substance: TEICOPLANIN
     Indication: Product used for unknown indication
     Route: 065

REACTIONS (2)
  - Localised infection [Unknown]
  - Skin disorder [Unknown]
